FAERS Safety Report 20481861 (Version 1)
Quarter: 2022Q1

REPORT INFORMATION
  Report Type: Spontaneous
  Country: US (occurrence: US)
  Receive Date: 20220216
  Receipt Date: 20220216
  Transmission Date: 20220423
  Serious: Yes (Death, Hospitalization, Other)
  Sender: FDA-Public Use
  Company Number: US-PFIZER INC-202200254576

PATIENT
  Age: 74 Year
  Sex: Female

DRUGS (6)
  1. PREGABALIN [Suspect]
     Active Substance: PREGABALIN
     Dosage: UNK (INGESTION)
     Route: 048
  2. PREGABALIN [Suspect]
     Active Substance: PREGABALIN
     Dosage: UNK (PARENTERAL)
     Route: 051
  3. QUETIAPINE [Suspect]
     Active Substance: QUETIAPINE
     Dosage: UNK(INGESTION)
     Route: 048
  4. QUETIAPINE [Suspect]
     Active Substance: QUETIAPINE
     Dosage: UNK(PARENTERAL)
     Route: 051
  5. INSULIN NOS [Suspect]
     Active Substance: INSULIN NOS
     Dosage: UNK (ORAL)
     Route: 048
  6. INSULIN NOS [Suspect]
     Active Substance: INSULIN NOS
     Dosage: UNK (PARENTERAL)

REACTIONS (2)
  - Accidental exposure to product [Fatal]
  - Death [Fatal]

NARRATIVE: CASE EVENT DATE: 20200101
